FAERS Safety Report 12787722 (Version 1)
Quarter: 2016Q3

REPORT INFORMATION
  Report Type: Spontaneous
  Country: US (occurrence: US)
  Receive Date: 20160927
  Receipt Date: 20160927
  Transmission Date: 20161109
  Serious: Yes (Other)
  Sender: FDA-Public Use
  Company Number: None

PATIENT
  Age: 27 Year
  Sex: Female
  Weight: 56.25 kg

DRUGS (4)
  1. VITAMIN C [Concomitant]
     Active Substance: ASCORBIC ACID
  2. CIPROFLOXACIN. [Suspect]
     Active Substance: CIPROFLOXACIN
     Indication: URINARY TRACT INFECTION
     Dosage: ?          QUANTITY:14 CAPSULE(S);?
     Route: 048
     Dates: start: 20160926, end: 20160927
  3. CRANBERRY. [Concomitant]
     Active Substance: CRANBERRY
  4. DMANNOSE [Concomitant]

REACTIONS (5)
  - Headache [None]
  - Feeling drunk [None]
  - Tendon pain [None]
  - Chills [None]
  - Euphoric mood [None]

NARRATIVE: CASE EVENT DATE: 20160927
